FAERS Safety Report 5256691-9 (Version None)
Quarter: 2007Q1

REPORT INFORMATION
  Report Type: 
  Country: None (occurrence: None)
  Receive Date: 20070306
  Receipt Date: 20070225
  Transmission Date: 20070707
  Serious: Yes (Life-Threatening, Hospitalization)
  Sender: FDA-Public Use
  Company Number: US-SOLVAY-00207000595

PATIENT
  Age: 28265 Day
  Sex: Male
  Weight: 108 kg

DRUGS (5)
  1. LISINOPRIL [Concomitant]
     Indication: HYPERTENSION
     Dosage: DAILY DOSE: 20 MILLIGRAM(S)
     Route: 048
     Dates: start: 20061201
  2. TESTOSTERONE [Suspect]
     Indication: HYPOGONADISM
     Dosage: DAILY DOSE: 5 GRAM(S)
     Route: 062
     Dates: start: 20070205, end: 20070224
  3. ONE A DAY VITAMIN [Concomitant]
     Indication: ILL-DEFINED DISORDER
     Dosage: DAILY DOSE: 1 DOSAGE FORM
     Route: 048
  4. VITAMIN E [Concomitant]
     Indication: ILL-DEFINED DISORDER
     Dosage: DAILY DOSE: 1 DOSAGE FORM
     Route: 048
  5. GINSENG [Concomitant]
     Indication: ILL-DEFINED DISORDER
     Dosage: DAILY DOSE: 1 DOSAGE FORM
     Route: 048

REACTIONS (11)
  - ATRIAL FIBRILLATION [None]
  - BLOOD CALCIUM ABNORMAL [None]
  - BLOOD CREATINE PHOSPHOKINASE INCREASED [None]
  - BLOOD CREATINE PHOSPHOKINASE MB INCREASED [None]
  - BLOOD PRESSURE INCREASED [None]
  - COUGH [None]
  - HYPERTENSIVE HEART DISEASE [None]
  - PROTEIN TOTAL ABNORMAL [None]
  - PULMONARY HYPERTENSION [None]
  - SINUS CONGESTION [None]
  - VENTRICULAR HYPERTROPHY [None]
